FAERS Safety Report 24735323 (Version 1)
Quarter: 2024Q4

REPORT INFORMATION
  Report Type: Report from Study
  Country: US (occurrence: US)
  Receive Date: 20241215
  Receipt Date: 20241215
  Transmission Date: 20250114
  Serious: No
  Sender: SUNOVION
  Company Number: US-SMPA-2023MYSCI1100387AA

PATIENT

DRUGS (17)
  1. ORGOVYX [Suspect]
     Active Substance: RELUGOLIX
     Indication: Prostate cancer
     Dosage: 360 MG, SINGLE
     Route: 048
  2. ORGOVYX [Suspect]
     Active Substance: RELUGOLIX
     Dosage: 120 MG, QD
     Route: 048
  3. ALPRAZOLAM [Concomitant]
     Active Substance: ALPRAZOLAM
  4. ASPIRIN [Concomitant]
     Active Substance: ASPIRIN
  5. ATORVASTATIN [Concomitant]
     Active Substance: ATORVASTATIN
  6. VITAMIN B12 [Concomitant]
     Active Substance: CYANOCOBALAMIN
  7. ERLEADA [Concomitant]
     Active Substance: APALUTAMIDE
  8. FENBENDAZOLE [Concomitant]
     Active Substance: FENBENDAZOLE
  9. FLOMAX [Concomitant]
     Active Substance: TAMSULOSIN HYDROCHLORIDE
  10. KLOR-CON M20 [Concomitant]
     Active Substance: POTASSIUM CHLORIDE
  11. NORCO [Concomitant]
     Active Substance: ACETAMINOPHEN\HYDROCODONE BITARTRATE
  12. PREDNISONE [Concomitant]
     Active Substance: PREDNISONE
  13. SILDENAFIL [Concomitant]
     Active Substance: SILDENAFIL
  14. TADALAFIL [Concomitant]
     Active Substance: TADALAFIL
  15. VITAMIN B6 [Concomitant]
     Active Substance: PYRIDOXINE HYDROCHLORIDE
  16. VITAMIN E [Concomitant]
     Active Substance: .ALPHA.-TOCOPHEROL
  17. THERA-FLUR [Concomitant]

REACTIONS (5)
  - No adverse event [Unknown]
  - Muscle spasms [Unknown]
  - Prostatic specific antigen increased [Unknown]
  - Haematuria [Recovered/Resolved]
  - Positron emission tomogram abnormal [Unknown]
